FAERS Safety Report 5048680-4 (Version None)
Quarter: 2006Q3

REPORT INFORMATION
  Report Type: 
  Country: None (occurrence: None)
  Receive Date: 20060712
  Receipt Date: 20060705
  Transmission Date: 20061208
  Serious: Yes (Hospitalization)
  Sender: FDA-Public Use
  Company Number: US-JNJFOC-20060701442

PATIENT
  Sex: Female
  Weight: 63.5 kg

DRUGS (11)
  1. FENTANYL TRANSDERMAL SYSTEM [Suspect]
     Indication: PAIN
     Route: 062
  2. DIOVAN [Concomitant]
     Route: 048
  3. LASIX [Concomitant]
     Indication: CARDIAC FAILURE CONGESTIVE
     Route: 048
  4. FERROUS SULFATE TAB [Concomitant]
     Indication: ANAEMIA
     Route: 048
  5. ARIMIDEX [Concomitant]
     Indication: BREAST CANCER
     Route: 048
  6. SINGULAIR [Concomitant]
     Indication: ASTHMA
     Route: 048
  7. XANAX [Concomitant]
     Indication: ANXIETY
     Route: 048
  8. SINEMET [Concomitant]
     Indication: PARKINSON'S DISEASE
     Route: 048
  9. PRANDIN [Concomitant]
     Indication: DIABETES MELLITUS
     Route: 048
  10. PERCOCET [Concomitant]
     Indication: PAIN
     Dosage: 10 MG OXYCODONE HYDROCHLORIDE / 325 MG ACETAMINOPHEN, 2 IN 1 DAY, ORAL
     Route: 048
  11. PROCRIT [Concomitant]
     Route: 042

REACTIONS (3)
  - DEPRESSION [None]
  - DRUG WITHDRAWAL SYNDROME [None]
  - PANCREATITIS [None]
